FAERS Safety Report 8552350-5 (Version None)
Quarter: 2012Q3

REPORT INFORMATION
  Report Type: 
  Country: None (occurrence: None)
  Receive Date: 20120731
  Receipt Date: 20120720
  Transmission Date: 20120928
  Serious: Yes (Hospitalization, Other)
  Sender: FDA-Public Use
  Company Number: US-BAYER-2011-112556

PATIENT
  Age: 33 Year
  Sex: Female
  Weight: 99.773 kg

DRUGS (18)
  1. LISINOPRIL [Concomitant]
     Indication: HYPERTENSION
     Dosage: UNK
     Dates: start: 20060101, end: 20080101
  2. HYDROCHLOROTHIAZIDE [Concomitant]
     Dosage: UNK
     Dates: start: 20051024
  3. ASPIRIN [Concomitant]
     Dosage: 650 MG, PRN
  4. POTASSIUM CHLORIDE [Concomitant]
     Dosage: UNK
     Dates: start: 20051001
  5. PLAVIX [Concomitant]
  6. YASMIN [Suspect]
     Indication: MENSTRUATION IRREGULAR
     Dosage: UNK
     Route: 048
     Dates: start: 20051001, end: 20051201
  7. YASMIN [Suspect]
     Indication: POLYCYSTIC OVARIES
  8. ALDOMET [Concomitant]
  9. CELEBREX [Concomitant]
     Dosage: 400 MG, UNK
     Dates: start: 20051024
  10. ATENOLOL [Concomitant]
     Indication: HYPERTENSION
     Dosage: UNK
     Dates: start: 19980101, end: 20051001
  11. ALBUTEROL [Concomitant]
     Indication: HYPERTENSION
     Dosage: UNK
     Dates: start: 19890101
  12. ACE INHIBITOR NOS [Concomitant]
     Dosage: UNK
     Dates: start: 20050101
  13. MOTRIN [Concomitant]
     Dosage: UNK
     Dates: start: 20051014
  14. CYTOXAN [Concomitant]
  15. GLYCOPYRROLATE [Concomitant]
     Dosage: 0.1 MG, UNK
     Dates: start: 20051024
  16. CLARITIN [Concomitant]
     Dosage: 1 TABLET, PRN
     Dates: end: 20051021
  17. FAMOTIDINE [Concomitant]
     Dosage: 20 MG, UNK
     Dates: start: 20051024
  18. VICODIN [Concomitant]
     Dosage: UNK
     Dates: start: 20051023

REACTIONS (7)
  - CONFUSIONAL STATE [None]
  - CEREBROVASCULAR ACCIDENT [None]
  - PAIN [None]
  - MEMORY IMPAIRMENT [None]
  - THROMBOSIS [None]
  - MOTOR DYSFUNCTION [None]
  - INJURY [None]
